FAERS Safety Report 5412102-1 (Version None)
Quarter: 2007Q3

REPORT INFORMATION
  Report Type: 
  Country: None (occurrence: None)
  Receive Date: 20070813
  Receipt Date: 20070803
  Transmission Date: 20080115
  Serious: Yes (Other)
  Sender: FDA-Public Use
  Company Number: AU-AVENTIS-200713837EU

PATIENT
  Age: 73 Year
  Sex: Female

DRUGS (3)
  1. RILUTEK [Suspect]
     Indication: MOTOR NEURONE DISEASE
     Route: 048
     Dates: start: 20070711
  2. ENDEP [Concomitant]
     Dosage: DOSE: UNK
  3. AMOXICILLIN [Concomitant]
     Dosage: DOSE: UNK

REACTIONS (2)
  - DYSPHAGIA [None]
  - INCREASED UPPER AIRWAY SECRETION [None]
